FAERS Safety Report 15388238 (Version 3)
Quarter: 2018Q4

REPORT INFORMATION
  Report Type: Spontaneous
  Country: HR (occurrence: HR)
  Receive Date: 20180915
  Receipt Date: 20181025
  Transmission Date: 20190204
  Serious: Yes (Disabling, Other)
  Sender: FDA-Public Use
  Company Number: HR-AMGEN-HRVSP2018125775

PATIENT
  Age: 37 Year
  Sex: Female
  Weight: 32 kg

DRUGS (5)
  1. XGEVA [Suspect]
     Active Substance: DENOSUMAB
     Indication: PARATHYROID TUMOUR
     Dosage: 4 X 60MG AND 10 X 120MG, TOTAL DOSE OF 1440MG
     Route: 058
     Dates: start: 20141010, end: 20180226
  2. SANDOSTATIN [Concomitant]
     Active Substance: OCTREOTIDE ACETATE
  3. MIMPARA [Suspect]
     Active Substance: CINACALCET HYDROCHLORIDE
     Indication: HYPERCALCAEMIA
     Dosage: UNK
     Route: 065
  4. PAMIDRONATE [Concomitant]
     Active Substance: PAMIDRONATE DISODIUM
     Indication: PARATHYROID TUMOUR MALIGNANT
     Dosage: 5X90MG,2X60MG (TOTAL 570 MG)
     Route: 042
     Dates: start: 20110601, end: 20160125
  5. EUTHYROX [Concomitant]
     Active Substance: LEVOTHYROXINE SODIUM

REACTIONS (2)
  - Osteonecrosis of jaw [Not Recovered/Not Resolved]
  - Off label use [Unknown]

NARRATIVE: CASE EVENT DATE: 20180816
